FAERS Safety Report 5848646-8 (Version None)
Quarter: 2008Q3

REPORT INFORMATION
  Report Type: 
  Country: None (occurrence: None)
  Receive Date: 20080818
  Receipt Date: 20080815
  Transmission Date: 20090109
  Serious: No
  Sender: FDA-Public Use
  Company Number: US-ASTRAZENECA-2008UW12699

PATIENT
  Age: 48 Year
  Sex: Female
  Weight: 81.6 kg

DRUGS (2)
  1. SEROQUEL [Suspect]
     Indication: BIPOLAR DISORDER
     Dosage: 100-400 MG IN FOUR DAYS
     Route: 048
     Dates: start: 20080606, end: 20080610
  2. LITHIUM CARBONATE [Concomitant]
     Indication: BIPOLAR DISORDER
     Dosage: 600 MG AT NIGHT
     Route: 048

REACTIONS (12)
  - CEREBROVASCULAR ACCIDENT [None]
  - CONVULSION [None]
  - DROOLING [None]
  - DYSKINESIA [None]
  - EXTRAPYRAMIDAL DISORDER [None]
  - FACIAL PALSY [None]
  - MUSCLE SPASMS [None]
  - OXYGEN SATURATION DECREASED [None]
  - RESTLESS LEGS SYNDROME [None]
  - SEDATION [None]
  - SOMNOLENCE [None]
  - UNRESPONSIVE TO STIMULI [None]
